FAERS Safety Report 5121317-1 (Version None)
Quarter: 2006Q4

REPORT INFORMATION
  Report Type: 
  Country: None (occurrence: None)
  Receive Date: 20061002
  Receipt Date: 20060925
  Transmission Date: 20070319
  Serious: Yes (Other)
  Sender: FDA-Public Use
  Company Number: 2006026051

PATIENT
  Age: 43 Year
  Sex: Male
  Weight: 70 kg

DRUGS (1)
  1. SALAZOPYRIN (SULFASALAZINE) [Suspect]
     Indication: COLITIS ULCERATIVE
     Dosage: 5 G (3 IN 1 D), ORAL
     Route: 048

REACTIONS (2)
  - ANXIETY [None]
  - DRUG DEPENDENCE [None]
